FAERS Safety Report 21278988 (Version 2)
Quarter: 2022Q3

REPORT INFORMATION
  Report Type: Spontaneous
  Country: US (occurrence: US)
  Receive Date: 20220901
  Receipt Date: 20220920
  Transmission Date: 20221027
  Serious: No
  Sender: FDA-Public Use
  Company Number: US-BRISTOL-MYERS SQUIBB COMPANY-2022-097465

PATIENT
  Age: 84 Year
  Sex: Female

DRUGS (1)
  1. REVLIMID [Suspect]
     Active Substance: LENALIDOMIDE
     Indication: Hypertension
     Dosage: DAYS 1-21, FOLLOWED BY 7 DAYS OFF
     Route: 048
     Dates: start: 20190814

REACTIONS (2)
  - COVID-19 [Unknown]
  - Intentional product use issue [Unknown]
